FAERS Safety Report 17844943 (Version 1)
Quarter: 2020Q2

REPORT INFORMATION
  Report Type: Spontaneous
  Country: CA (occurrence: CA)
  Receive Date: 20200601
  Receipt Date: 20200601
  Transmission Date: 20200714
  Serious: Yes (Hospitalization)
  Sender: FDA-Public Use
  Company Number: CA-ROCHE-2608916

PATIENT
  Sex: Male

DRUGS (15)
  1. ACETYLSALICYLIC ACID [Concomitant]
     Active Substance: ASPIRIN
  2. FENOFIBRATE. [Concomitant]
     Active Substance: FENOFIBRATE
  3. XARELTO [Concomitant]
     Active Substance: RIVAROXABAN
  4. FOLIC ACID. [Concomitant]
     Active Substance: FOLIC ACID
  5. PANTOPRAZOLE [Concomitant]
     Active Substance: PANTOPRAZOLE
  6. CRANBERRY [VACCINIUM SPP.] [Concomitant]
  7. SULFADIAZINE;TRIMETHOPRIM [Concomitant]
     Active Substance: SULFADIAZINE\TRIMETHOPRIM
  8. PREDNISONE. [Concomitant]
     Active Substance: PREDNISONE
  9. VITAMIN C [Concomitant]
     Active Substance: ASCORBIC ACID
  10. VITAMIN D3 [Concomitant]
     Active Substance: CHOLECALCIFEROL
  11. RITUXIMAB. [Suspect]
     Active Substance: RITUXIMAB
     Indication: ANTI-NEUTROPHIL CYTOPLASMIC ANTIBODY POSITIVE VASCULITIS
     Route: 042
  12. METOPROLOL. [Concomitant]
     Active Substance: METOPROLOL
  13. FUROSEMIDE. [Concomitant]
     Active Substance: FUROSEMIDE
  14. METHOTREXATE. [Suspect]
     Active Substance: METHOTREXATE
     Indication: PRODUCT USED FOR UNKNOWN INDICATION
     Route: 065
  15. CYANOCOBALAMIN. [Concomitant]
     Active Substance: CYANOCOBALAMIN

REACTIONS (3)
  - Fluid retention [Unknown]
  - Weight increased [Unknown]
  - Pneumocystis jirovecii pneumonia [Unknown]
